FAERS Safety Report 17578513 (Version 1)
Quarter: 2020Q1

REPORT INFORMATION
  Report Type: Other
  Country: IT (occurrence: IT)
  Receive Date: 20200325
  Receipt Date: 20200325
  Transmission Date: 20200409
  Serious: Yes (Hospitalization)
  Sender: FDA-Public Use
  Company Number: IT-CELLTRION INC.-2020IT020803

PATIENT

DRUGS (2)
  1. TRUXIMA [Suspect]
     Active Substance: RITUXIMAB-ABBS
     Indication: VASCULITIS
     Dosage: 100 MG
     Dates: start: 20200224, end: 20200224
  2. TRUXIMA [Suspect]
     Active Substance: RITUXIMAB-ABBS
     Dosage: 500 MG
     Route: 041
     Dates: start: 20200224, end: 20200224

REACTIONS (5)
  - Urticaria [Recovering/Resolving]
  - Hypotension [Recovering/Resolving]
  - Underdose [Unknown]
  - Hyperhidrosis [Recovering/Resolving]
  - Face oedema [Recovering/Resolving]

NARRATIVE: CASE EVENT DATE: 20200224
